FAERS Safety Report 8332757-1 (Version None)
Quarter: 2012Q1

REPORT INFORMATION
  Report Type: 
  Country: None (occurrence: None)
  Receive Date: 20120315
  Receipt Date: 20110415
  Transmission Date: 20120608
  Serious: No
  Sender: FDA-Public Use
  Company Number: PHHY2011US30392

PATIENT
  Age: 52 Year
  Sex: Female

DRUGS (4)
  1. VITAMIN B (NO INGREDIENTS/SUBSTANCES) [Concomitant]
  2. VESICARE [Concomitant]
  3. VITAMIN D [Concomitant]
  4. GILENYA [Suspect]
     Indication: MULTIPLE SCLEROSIS
     Dosage: 0.5 MG, DAILY, ORAL
     Route: 048
     Dates: start: 20110406

REACTIONS (2)
  - BLOOD PRESSURE DECREASED [None]
  - NAUSEA [None]
